FAERS Safety Report 5124151-1 (Version None)
Quarter: 2006Q4

REPORT INFORMATION
  Report Type: 
  Country: None (occurrence: None)
  Receive Date: 20061010
  Receipt Date: 20060511
  Transmission Date: 20070319
  Serious: No
  Sender: FDA-Public Use
  Company Number: US-BRISTOL-MYERS SQUIBB COMPANY-13374988

PATIENT
  Age: 80 Year
  Sex: Female
  Weight: 68 kg

DRUGS (2)
  1. AVAPRO [Suspect]
     Indication: HYPERTENSION
     Dosage: DOSE REDUCED TO 75 MG DAILY
     Dates: start: 20050614
  2. MULTI-VITAMIN [Concomitant]

REACTIONS (2)
  - ARTHRALGIA [None]
  - DYSPEPSIA [None]
